FAERS Safety Report 9424699 (Version 4)
Quarter: 2014Q2

REPORT INFORMATION
  Report Type: Spontaneous
  Country: US (occurrence: None)
  Receive Date: 20130725
  Receipt Date: 20140515
  Transmission Date: 20141212
  Serious: Yes (Other)
  Sender: FDA-Public Use
  Company Number: JPI-P-033818

PATIENT
  Age: 41 Year
  Sex: Male
  Weight: 73.5 kg

DRUGS (7)
  1. XYREM [Suspect]
     Indication: NARCOLEPSY
     Dosage: 4.5GM (2.25GM, 2 IN 1 D) ORAL
     Route: 048
     Dates: start: 20130615, end: 2013
  2. XYREM [Suspect]
     Indication: NARCOLEPSY
     Dosage: 4.5GM (2.25GM, 2 IN 1 D) ORAL
     Route: 048
     Dates: start: 20130615, end: 2013
  3. XYREM [Suspect]
     Indication: CATAPLEXY
     Dosage: 4.5GM (2.25GM, 2 IN 1 D) ORAL
     Route: 048
     Dates: start: 20130615, end: 2013
  4. PROVIGIL (MODAFINIL) [Concomitant]
  5. WELLBUTRIN (BUPROPION HYDROCHLORIDE) [Concomitant]
  6. ZYPREXA (OLANZAPINE) [Concomitant]
  7. METHADONE (METHADONE) [Concomitant]

REACTIONS (7)
  - Depression [None]
  - Bipolar disorder [None]
  - Condition aggravated [None]
  - Anger [None]
  - Sleep disorder [None]
  - Middle insomnia [None]
  - Depression [None]
